FAERS Safety Report 23855115 (Version 5)
Quarter: 2024Q4

REPORT INFORMATION
  Report Type: Spontaneous
  Country: US (occurrence: US)
  Receive Date: 20240514
  Receipt Date: 20241202
  Transmission Date: 20250115
  Serious: No
  Sender: SANOFI AVENTIS
  Company Number: US-SA-SAC20240507001613

PATIENT
  Age: 42 Year
  Sex: Male
  Weight: 83.4 kg

DRUGS (12)
  1. ALPROLIX [Suspect]
     Active Substance: EFTRENONACOG ALFA
     Indication: Factor IX deficiency
     Dosage: 7000 U (6300-7700) , Q10D FOR PROPHYLAXIS
     Route: 042
     Dates: start: 202001
  2. ALPROLIX [Suspect]
     Active Substance: EFTRENONACOG ALFA
     Indication: Factor IX deficiency
     Dosage: 7000 U (6300-7700) , Q10D FOR PROPHYLAXIS
     Route: 042
     Dates: start: 202001
  3. ALPROLIX [Suspect]
     Active Substance: EFTRENONACOG ALFA
     Dosage: 3500 U; (3150-3850), QOD (EVERY 48 HOURS FOR MINOR BLEED)
     Route: 042
     Dates: start: 202001
  4. ALPROLIX [Suspect]
     Active Substance: EFTRENONACOG ALFA
     Dosage: 3500 U; (3150-3850), QOD (EVERY 48 HOURS FOR MINOR BLEED)
     Route: 042
     Dates: start: 202001
  5. ALPROLIX [Suspect]
     Active Substance: EFTRENONACOG ALFA
     Dosage: 7000 UNITS (6300-7700) FOR MAJOR BLEED REPEAT IN 6-10 HOURS.
     Route: 042
     Dates: start: 202001
  6. ALPROLIX [Suspect]
     Active Substance: EFTRENONACOG ALFA
     Dosage: 7000 UNITS (6300-7700) FOR MAJOR BLEED REPEAT IN 6-10 HOURS.
     Route: 042
     Dates: start: 202001
  7. ALPROLIX [Suspect]
     Active Substance: EFTRENONACOG ALFA
     Dosage: 7000 UNITS (6300-7700), QD (EVERY 24 HOURS FOR 3 DAYS FOR MAJOR BLEED)
     Route: 042
     Dates: start: 202001
  8. ALPROLIX [Suspect]
     Active Substance: EFTRENONACOG ALFA
     Dosage: 7000 UNITS (6300-7700), QD (EVERY 24 HOURS FOR 3 DAYS FOR MAJOR BLEED)
     Route: 042
     Dates: start: 202001
  9. ALPROLIX [Suspect]
     Active Substance: EFTRENONACOG ALFA
     Dosage: 3000 U
     Route: 042
     Dates: start: 202001
  10. ALPROLIX [Suspect]
     Active Substance: EFTRENONACOG ALFA
     Dosage: 3000 U
     Route: 042
     Dates: start: 202001
  11. ALPROLIX [Suspect]
     Active Substance: EFTRENONACOG ALFA
     Dosage: 2000 U
     Route: 042
     Dates: start: 202001
  12. ALPROLIX [Suspect]
     Active Substance: EFTRENONACOG ALFA
     Dosage: 2000 U
     Route: 042
     Dates: start: 202001

REACTIONS (4)
  - Haemorrhage [Recovered/Resolved]
  - Haemorrhage [Not Recovered/Not Resolved]
  - Spontaneous haemorrhage [Unknown]
  - Weight decreased [Unknown]

NARRATIVE: CASE EVENT DATE: 20240201
